FAERS Safety Report 7633114-3 (Version None)
Quarter: 2011Q3

REPORT INFORMATION
  Report Type: 
  Country: None (occurrence: None)
  Receive Date: 20110725
  Receipt Date: 20110714
  Transmission Date: 20111222
  Serious: Yes (Disabling, Other)
  Sender: FDA-Public Use
  Company Number: PHFR2011GB01392

PATIENT
  Sex: Male

DRUGS (2)
  1. CLOZAPINE [Suspect]
     Indication: SCHIZOPHRENIA
     Route: 048
     Dates: start: 20100823
  2. CLOZAPINE [Suspect]
     Route: 048
     Dates: start: 20110701

REACTIONS (6)
  - VIRAL INFECTION [None]
  - WHITE BLOOD CELL COUNT DECREASED [None]
  - NEUTROPENIA [None]
  - FRACTURE [None]
  - MALAISE [None]
  - NEUTROPHIL COUNT DECREASED [None]
